FAERS Safety Report 9289903 (Version 2)
Quarter: 2015Q2

REPORT INFORMATION
  Report Type: Spontaneous
  Country: ES (occurrence: ES)
  Receive Date: 20130515
  Receipt Date: 20150403
  Transmission Date: 20150821
  Serious: Yes (Death, Hospitalization)
  Sender: FDA-Public Use
  Company Number: ES-RANBAXY-2013R1-69046

PATIENT
  Age: 36 Year
  Sex: Female

DRUGS (11)
  1. NEBULIZED LIPOSOMAL AMPHOTERICIN B [Concomitant]
     Indication: ASPERGILLUS INFECTION
     Dosage: 25 MG, 3/WEEK
     Route: 065
     Dates: start: 200403, end: 2004
  2. NEBULIZED LIPOSOMAL AMPHOTERICIN B [Concomitant]
     Indication: ASPERGILLUS INFECTION
     Dosage: UNK
     Route: 065
     Dates: start: 20040527, end: 2004
  3. CASPOFUNGIN [Concomitant]
     Active Substance: CASPOFUNGIN
     Indication: ASPERGILLUS INFECTION
     Dosage: UNK
     Route: 065
     Dates: start: 200405, end: 2004
  4. VORICONAZOLE. [Suspect]
     Active Substance: VORICONAZOLE
     Indication: ASPERGILLUS INFECTION
     Dosage: 6 MG/KG, BID
     Route: 042
     Dates: start: 2003, end: 2003
  5. CASPOFUNGIN [Concomitant]
     Active Substance: CASPOFUNGIN
     Indication: ASPERGILLUS INFECTION
     Dosage: 50 MG, DAILY
     Route: 065
     Dates: start: 2003, end: 2003
  6. NEBULIZED LIPOSOMAL AMPHOTERICIN B [Concomitant]
     Indication: ASPERGILLUS INFECTION
     Dosage: 25 MG, 1/WEEK
     Route: 065
     Dates: start: 2004, end: 2004
  7. VORICONAZOLE. [Suspect]
     Active Substance: VORICONAZOLE
     Indication: ASPERGILLUS INFECTION
     Dosage: 4 MG/KG, BID
     Route: 042
     Dates: start: 2003, end: 2003
  8. CASPOFUNGIN [Concomitant]
     Active Substance: CASPOFUNGIN
     Indication: ASPERGILLUS INFECTION
     Dosage: 70 MG, DAILY, AS LOADING DOSE
     Route: 065
     Dates: start: 2003, end: 2003
  9. VORICONAZOLE. [Suspect]
     Active Substance: VORICONAZOLE
     Indication: ASPERGILLUS INFECTION
     Dosage: 200 MG, BID
     Route: 048
     Dates: start: 2003, end: 200403
  10. VORICONAZOLE. [Suspect]
     Active Substance: VORICONAZOLE
     Indication: ASPERGILLUS INFECTION
     Dosage: UNK
     Route: 065
     Dates: start: 200405, end: 2004
  11. VORICONAZOLE. [Suspect]
     Active Substance: VORICONAZOLE
     Indication: ASPERGILLUS INFECTION
     Dosage: 200 MG, BID
     Route: 048
     Dates: start: 200409

REACTIONS (6)
  - Pneumonia [Unknown]
  - Drug resistance [Unknown]
  - Respiratory failure [Fatal]
  - Pseudomonas infection [Unknown]
  - Aspergillus infection [Unknown]
  - Enterobacter infection [Unknown]

NARRATIVE: CASE EVENT DATE: 2003
